FAERS Safety Report 15655208 (Version 1)
Quarter: 2018Q4

REPORT INFORMATION
  Report Type: Spontaneous
  Country: JP (occurrence: JP)
  Receive Date: 20181126
  Receipt Date: 20181126
  Transmission Date: 20190205
  Serious: Yes (Death)
  Sender: FDA-Public Use
  Company Number: JP-ELI_LILLY_AND_COMPANY-JP201811010080

PATIENT
  Age: 84 Year
  Sex: Female
  Weight: 47 kg

DRUGS (7)
  1. MAGMITT [Concomitant]
     Active Substance: MAGNESIUM OXIDE
     Route: 048
  2. DEXAMETHASONE. [Concomitant]
     Active Substance: DEXAMETHASONE
     Route: 048
  3. TAKECAB [Concomitant]
     Active Substance: VONOPRAZAN FUMURATE
     Route: 048
  4. DULOXETINE HYDROCHLORIDE. [Suspect]
     Active Substance: DULOXETINE HYDROCHLORIDE
     Indication: SUICIDAL IDEATION
     Dosage: 20 MG, DAILY
     Route: 048
     Dates: start: 20180909, end: 20181004
  5. ZOLPIDEM TARTRATE. [Concomitant]
     Active Substance: ZOLPIDEM TARTRATE
     Route: 048
  6. ANGELICA ACUTILOBA ROOT;ASTRAGALUS SPP. ROOT; [Concomitant]
  7. YD SOLITA T NO.3G [Concomitant]
     Dosage: UNK
     Route: 041
     Dates: end: 20180925

REACTIONS (3)
  - Hyponatraemia [Recovered/Resolved]
  - Blood chloride decreased [Unknown]
  - Pancreatic carcinoma [Fatal]

NARRATIVE: CASE EVENT DATE: 20180925
